FAERS Safety Report 9748642 (Version 2)
Quarter: 2014Q1

REPORT INFORMATION
  Report Type: Not Available
  Country: GB (occurrence: GB)
  Receive Date: 20131212
  Receipt Date: 20140317
  Transmission Date: 20141002
  Serious: Yes (Other)
  Sender: FDA-Public Use
  Company Number: GB-ASTELLAS-2013EU010719

PATIENT
  Age: 77 Year
  Sex: Male

DRUGS (14)
  1. TACROLIMUS SYSTEMIC [Suspect]
     Indication: RASH
     Dosage: UNK
     Route: 061
     Dates: start: 20131118
  2. AMITRIPTYLINE HYDROCHLORIDE [Concomitant]
     Dosage: UNK
     Route: 065
     Dates: start: 20130722, end: 20131025
  3. BENDROFLUMETHIAZIDE [Concomitant]
     Dosage: UNK
     Route: 065
     Dates: start: 20130722
  4. CHLORAMPHENICOL [Concomitant]
     Dosage: UNK
     Route: 065
     Dates: start: 20131105, end: 20131110
  5. CLARITHROMYCIN [Concomitant]
     Dosage: UNK
     Route: 065
     Dates: start: 20131105, end: 20131112
  6. COSOPT [Concomitant]
     Dosage: UNK
     Route: 065
     Dates: start: 20130722
  7. DICLOFENAC SODIUM [Concomitant]
     Dosage: UNK
     Route: 065
     Dates: start: 20130722, end: 20131112
  8. EPIPEN [Concomitant]
     Dosage: UNK
     Route: 065
     Dates: start: 20130823, end: 20130920
  9. GABAPENTIN [Concomitant]
     Dosage: UNK
     Route: 065
     Dates: start: 20131028
  10. HYDROCORTICONE [Concomitant]
     Dosage: UNK
     Route: 065
     Dates: start: 20131108, end: 20131109
  11. LORATADINE [Concomitant]
     Dosage: UNK
     Route: 065
     Dates: start: 20131115
  12. PERINDOPRIL ERBUMINE [Concomitant]
     Dosage: UNK
     Route: 065
     Dates: start: 20130722, end: 20131022
  13. SIMVASTATIN [Concomitant]
     Dosage: UNK
     Route: 065
     Dates: start: 20130823
  14. TEMAZEPAM [Concomitant]
     Dosage: UNK
     Route: 065
     Dates: start: 20130722

REACTIONS (4)
  - Dermatitis allergic [Unknown]
  - Rash [Unknown]
  - Dermatitis [Unknown]
  - Skin irritation [Unknown]
